FAERS Safety Report 22258467 (Version 1)
Quarter: 2023Q2

REPORT INFORMATION
  Report Type: Other
  Country: CA (occurrence: None)
  Receive Date: 20230427
  Receipt Date: 20230427
  Transmission Date: 20230721
  Serious: Yes (Other)
  Sender: FDA-Public Use
  Company Number: CA-ROCHE-3224836

PATIENT
  Sex: Female

DRUGS (2)
  1. RITUXAN [Suspect]
     Active Substance: RITUXIMAB
     Indication: Product used for unknown indication
     Route: 065
     Dates: start: 2017
  2. DALFAMPRIDINE [Suspect]
     Active Substance: DALFAMPRIDINE
     Indication: Multiple sclerosis
     Route: 048
     Dates: start: 20211231

REACTIONS (13)
  - Progressive multiple sclerosis [Not Recovered/Not Resolved]
  - Skin infection [Not Recovered/Not Resolved]
  - Eye infection [Not Recovered/Not Resolved]
  - Arthralgia [Unknown]
  - Bladder disorder [Not Recovered/Not Resolved]
  - Fatigue [Unknown]
  - Mobility decreased [Not Recovered/Not Resolved]
  - Anxiety [Not Recovered/Not Resolved]
  - Glucose tolerance impaired [Unknown]
  - Hypoaesthesia [Not Recovered/Not Resolved]
  - Abscess [Recovered/Resolved]
  - Fall [Unknown]
  - Muscular weakness [Unknown]
